FAERS Safety Report 7495145-6 (Version None)
Quarter: 2011Q2

REPORT INFORMATION
  Report Type: 
  Country: None (occurrence: None)
  Receive Date: 20110520
  Receipt Date: 20110510
  Transmission Date: 20111010
  Serious: Yes (Other)
  Sender: FDA-Public Use
  Company Number: US-AMGEN-USASP2011024286

PATIENT
  Age: 69 Year
  Sex: Male

DRUGS (3)
  1. ENBREL [Suspect]
     Dosage: UNK, UNK
     Dates: start: 20050901, end: 20060501
  2. ORENCIA [Concomitant]
  3. ENBREL [Suspect]
     Indication: PRODUCT USED FOR UNKNOWN INDICATION
     Dosage: 50 MG, QWK
     Dates: start: 20100701, end: 20101101

REACTIONS (2)
  - CEREBROVASCULAR ACCIDENT [None]
  - TUBERCULOSIS [None]
